FAERS Safety Report 6132683-2 (Version None)
Quarter: 2009Q1

REPORT INFORMATION
  Report Type: 
  Country: None (occurrence: None)
  Receive Date: 20090326
  Receipt Date: 20090313
  Transmission Date: 20090719
  Serious: Yes (Death, Other)
  Sender: FDA-Public Use
  Company Number: IT-RANBAXY-2009RR-22740

PATIENT
  Age: 77 Year
  Sex: Male

DRUGS (11)
  1. METFORMIN HCL [Suspect]
     Indication: DIABETES MELLITUS
     Dosage: 500 MG, QD
  2. ERLOTINIB [Suspect]
     Indication: LUNG NEOPLASM MALIGNANT
     Dosage: 100 MG, QD
     Dates: start: 20070802
  3. CARBOPLATIN [Concomitant]
     Indication: CHEMOTHERAPY
     Dosage: UNK
     Dates: start: 20060101
  4. GEMCITABINE [Concomitant]
     Indication: CHEMOTHERAPY
     Dosage: UNK
     Dates: start: 20060101
  5. DOCETAXEL [Concomitant]
     Indication: CHEMOTHERAPY
  6. GLIBENCLAMIDE [Concomitant]
  7. REPAGLINIDE [Concomitant]
  8. DOXAZOSIN MESYLATE [Concomitant]
  9. OMEPRAZOLE [Concomitant]
  10. FUROSEMIDE [Concomitant]
  11. PREDNISONE [Concomitant]
     Dosage: UNK

REACTIONS (2)
  - HEPATITIS ACUTE [None]
  - LACTIC ACIDOSIS [None]
